FAERS Safety Report 4462397-6 (Version None)
Quarter: 2004Q3

REPORT INFORMATION
  Report Type: 
  Country: None (occurrence: None)
  Receive Date: 20040928
  Receipt Date: 20040920
  Transmission Date: 20050211
  Serious: Yes (Hospitalization)
  Sender: FDA-Public Use
  Company Number: STA-AE-04-MTX-421

PATIENT
  Age: 66 Year
  Sex: Female

DRUGS (11)
  1. RHEUMATREX [Suspect]
     Indication: PSORIATIC ARTHROPATHY
     Dosage: 4 MG 1X PER 1 WK, ORAL
     Route: 048
     Dates: start: 20010524, end: 20011106
  2. RHEUMATREX [Suspect]
     Indication: PSORIATIC ARTHROPATHY
     Dosage: 6 MG 1X PER 1 WK, ORAL
     Route: 048
     Dates: start: 20011107
  3. AZULFIDINE [Suspect]
     Indication: RHEUMATOID ARTHRITIS
     Dosage: ORAL
     Route: 048
     Dates: start: 20030320
  4. PREDNISOLONE [Suspect]
     Indication: RHEUMATOID ARTHRITIS
     Dosage: ORAL
     Route: 048
     Dates: start: 20001127
  5. REMICADE [Suspect]
     Indication: RHEUMATOID ARTHRITIS
     Dosage: INTRAVENOUS
     Route: 042
     Dates: start: 20031030, end: 20031030
  6. REMICADE [Suspect]
     Indication: RHEUMATOID ARTHRITIS
     Dosage: INTRAVENOUS
     Route: 042
     Dates: start: 20031112, end: 20031112
  7. MENATETRENONE (MENATETRENONE) [Concomitant]
  8. LANSOPRAZOLE [Concomitant]
  9. SELBEX (TEPRENONE) [Concomitant]
  10. VERAPAMIL HYDROCHLORIDE [Concomitant]
  11. MOHRUS (KETOPROFEN) [Concomitant]

REACTIONS (5)
  - C-REACTIVE PROTEIN INCREASED [None]
  - PHARYNGOLARYNGEAL PAIN [None]
  - TENDERNESS [None]
  - THYROID DISORDER [None]
  - THYROIDITIS [None]
